FAERS Safety Report 21156253 (Version 1)
Quarter: 2022Q3

REPORT INFORMATION
  Report Type: Spontaneous
  Country: US (occurrence: US)
  Receive Date: 20220801
  Receipt Date: 20220801
  Transmission Date: 20221026
  Serious: No
  Sender: FDA-Public Use
  Company Number: US-PADAGIS-2022PAD00149

PATIENT

DRUGS (3)
  1. ESTRADIOL [Suspect]
     Active Substance: ESTRADIOL
     Indication: Product used for unknown indication
     Dosage: 2 G DAILY
     Route: 067
  2. ESTRADIOL [Suspect]
     Active Substance: ESTRADIOL
     Dosage: 2 G, TWICE WEEKLY
     Route: 067
  3. ESTRADIOL [Suspect]
     Active Substance: ESTRADIOL
     Dosage: 1 G
     Route: 067

REACTIONS (3)
  - Product packaging quantity issue [Unknown]
  - Incorrect dose administered [Unknown]
  - Device use issue [Unknown]
